FAERS Safety Report 23750059 (Version 2)
Quarter: 2024Q2

REPORT INFORMATION
  Report Type: Report from Study
  Country: CA (occurrence: CA)
  Receive Date: 20240417
  Receipt Date: 20240515
  Transmission Date: 20240716
  Serious: Yes (Other)
  Sender: FDA-Public Use
  Company Number: CA-JNJFOC-20240340921

PATIENT
  Age: 57 Year
  Sex: Male

DRUGS (2)
  1. REMICADE [Suspect]
     Active Substance: INFLIXIMAB
     Indication: Colitis ulcerative
     Route: 041
     Dates: start: 20220808
  2. REMICADE [Suspect]
     Active Substance: INFLIXIMAB
     Route: 041

REACTIONS (3)
  - Haemorrhage [Recovered/Resolved]
  - Abdominal distension [Recovered/Resolved]
  - Gastrointestinal inflammation [Recovering/Resolving]

NARRATIVE: CASE EVENT DATE: 20240304
